FAERS Safety Report 4317113-5 (Version None)
Quarter: 2004Q1

REPORT INFORMATION
  Report Type: 
  Country: None (occurrence: None)
  Receive Date: 20040312
  Receipt Date: 20040225
  Transmission Date: 20041129
  Serious: Yes (Life-Threatening, Hospitalization)
  Sender: FDA-Public Use
  Company Number: 2003IM001161

PATIENT
  Age: 21 Year
  Sex: Male

DRUGS (3)
  1. ADVAFERON (A643_INTERFERON ALFACON-1) [Suspect]
     Indication: HEPATITIS C
     Dosage: 18 MU;QOD;SUBCUTANEOUS
     Route: 058
     Dates: start: 20030522, end: 20031020
  2. LAXOPROFEN SODIUM [Concomitant]
  3. REBAMIPIDE [Concomitant]

REACTIONS (5)
  - ENCEPHALOPATHY [None]
  - HEPATITIS FULMINANT [None]
  - PLATELET COUNT DECREASED [None]
  - PYREXIA [None]
  - WHITE BLOOD CELL COUNT DECREASED [None]
